FAERS Safety Report 17736642 (Version 5)
Quarter: 2021Q1

REPORT INFORMATION
  Report Type: Spontaneous
  Country: CN (occurrence: CN)
  Receive Date: 20200501
  Receipt Date: 20210310
  Transmission Date: 20210419
  Serious: Yes (Hospitalization)
  Sender: FDA-Public Use
  Company Number: CN-CELGENEUS-CHN-20200408184

PATIENT
  Age: 57 Year
  Sex: Male
  Weight: 74 kg

DRUGS (15)
  1. ABRAXANE [Suspect]
     Active Substance: PACLITAXEL
     Dosage: 188.6 MILLIGRAM
     Route: 041
     Dates: start: 20200304, end: 20200304
  2. LANSOPRAZOLE. [Concomitant]
     Active Substance: LANSOPRAZOLE
     Indication: GASTROINTESTINAL DISORDER PROPHYLAXIS
     Dosage: 30 MILLIGRAM
     Route: 041
     Dates: start: 20191224, end: 20191224
  3. CARBOPLATIN. [Suspect]
     Active Substance: CARBOPLATIN
     Dosage: 297.6 MILLIGRAM
     Route: 041
     Dates: start: 20200304, end: 20200304
  4. SERPLULIMAB. [Suspect]
     Active Substance: SERPLULIMAB
     Indication: SQUAMOUS CELL CARCINOMA
     Dosage: 351 MILLIGRAM
     Route: 041
     Dates: start: 20191224
  5. LANSOPRAZOLE. [Concomitant]
     Active Substance: LANSOPRAZOLE
     Dosage: 30 MILLIGRAM
     Route: 041
     Dates: start: 20191231, end: 20191231
  6. LANSOPRAZOLE. [Concomitant]
     Active Substance: LANSOPRAZOLE
     Dosage: 30 MILLIGRAM
     Route: 041
     Dates: start: 20200304
  7. CARBOPLATIN. [Suspect]
     Active Substance: CARBOPLATIN
     Indication: SQUAMOUS CELL CARCINOMA
     Dosage: 297.6 MILLIGRAM
     Route: 041
     Dates: start: 20191224
  8. SERPLULIMAB. [Suspect]
     Active Substance: SERPLULIMAB
     Route: 041
     Dates: start: 20200527
  9. LANSOPRAZOLE. [Concomitant]
     Active Substance: LANSOPRAZOLE
     Dosage: 30 MILLIGRAM
     Route: 041
     Dates: start: 20200116, end: 20200116
  10. LANSOPRAZOLE. [Concomitant]
     Active Substance: LANSOPRAZOLE
     Dosage: 30 MILLIGRAM
     Route: 041
     Dates: start: 20200123, end: 20200123
  11. LEVOTHYROXINE SODIUM. [Concomitant]
     Active Substance: LEVOTHYROXINE SODIUM
     Indication: HYPOTHYROIDISM
     Dosage: 25 MILLIGRAM
     Route: 048
     Dates: start: 20191226
  12. LANSOPRAZOLE. [Concomitant]
     Active Substance: LANSOPRAZOLE
     Dosage: 30 MILLIGRAM
     Route: 041
     Dates: start: 20200107, end: 20200107
  13. COMPOUND AMINOPHENAZONE AND BARBITAL [Concomitant]
     Indication: PYREXIA
     Route: 030
     Dates: start: 20200124, end: 20200124
  14. ABRAXANE [Suspect]
     Active Substance: PACLITAXEL
     Indication: SQUAMOUS CELL CARCINOMA
     Dosage: 188.6 MILLIGRAM
     Route: 041
     Dates: start: 20191224
  15. SERPLULIMAB. [Suspect]
     Active Substance: SERPLULIMAB
     Dosage: 351 MILLIGRAM
     Route: 041
     Dates: start: 20200304, end: 20200304

REACTIONS (1)
  - Immune-mediated nephritis [Recovering/Resolving]

NARRATIVE: CASE EVENT DATE: 20200204
